FAERS Safety Report 7779683-4 (Version None)
Quarter: 2011Q3

REPORT INFORMATION
  Report Type: 
  Country: None (occurrence: None)
  Receive Date: 20110927
  Receipt Date: 20110408
  Transmission Date: 20111222
  Serious: Yes (Death)
  Sender: FDA-Public Use
  Company Number: US-BAYER-201035948NA

PATIENT
  Sex: Female
  Weight: 108.39 kg

DRUGS (53)
  1. NEXIUM [Concomitant]
     Dosage: 40 MG, QD
     Route: 048
  2. DILAUDID [Concomitant]
     Route: 042
  3. LINEZOLID [Concomitant]
     Dosage: 600 MG, BID
     Route: 042
  4. MEROPENEM [Concomitant]
  5. MAGNEVIST [Suspect]
     Indication: IMAGING PROCEDURE
     Dosage: UNK
     Dates: start: 20030908, end: 20030908
  6. OMNISCAN [Suspect]
     Indication: IMAGING PROCEDURE
     Dosage: 40 ML, ONCE
     Route: 042
     Dates: start: 20020215, end: 20020215
  7. OMNISCAN [Suspect]
     Indication: ANGIOGRAM
     Dosage: 20 ML, ONCE
     Route: 042
     Dates: start: 20030815, end: 20030815
  8. OPTIMARK [Suspect]
     Indication: IMAGING PROCEDURE
  9. ASPIRIN [Concomitant]
     Dosage: 325 MG, QD
     Route: 048
  10. PREDNISONE [Concomitant]
     Route: 048
  11. NPH INSULIN [Concomitant]
     Indication: DIABETES MELLITUS
     Dosage: 20 UNITS Q AM, 15 UNITS Q PM
     Route: 058
  12. AMIKACIN [Concomitant]
     Dosage: 1200 MG
     Route: 042
  13. PANCRELIPASE [Concomitant]
     Dosage: 2 DOSE TABLET BEFORE MEALS
     Route: 048
  14. ATROVENT [Concomitant]
  15. ANZEMET [Concomitant]
  16. GABAPENTIN [Concomitant]
  17. FLAGYL [Concomitant]
  18. OMNISCAN [Suspect]
     Indication: NUCLEAR MAGNETIC RESONANCE IMAGING
     Dosage: UNK
     Route: 042
     Dates: start: 20030924, end: 20030924
  19. OMNISCAN [Suspect]
     Indication: ANGIOPLASTY
     Dosage: UNK
     Route: 042
     Dates: start: 20031030, end: 20031030
  20. AMBIEN [Concomitant]
     Indication: INSOMNIA
     Dosage: 5 MG, HS
     Route: 048
  21. CALCITRIOL [Concomitant]
     Dosage: 0.25 ?G, QD
     Route: 048
  22. PROTONIX [Concomitant]
     Dosage: 40 MG, QD
     Route: 048
  23. DURAGESIC-100 [Concomitant]
     Dosage: 100 MCG EVERY 72 HOURS
  24. CALCITRIOL [Concomitant]
  25. MAGNEVIST [Suspect]
     Indication: NUCLEAR MAGNETIC RESONANCE IMAGING
  26. LIOTHYSONE [Concomitant]
  27. POTASSIUM CHLORIDE [Concomitant]
  28. NEURONTIN [Concomitant]
     Indication: NEURALGIA
     Dosage: 300 MG, QOD
     Route: 048
  29. CYTOMEL [Concomitant]
     Dosage: 50 ?G, QD
     Route: 048
  30. ASCORBIC ACID [Concomitant]
  31. HEPARIN [Concomitant]
  32. FERROUS SULFATE TAB [Concomitant]
     Dosage: 300 MG, QD
     Route: 048
  33. NEPHRO-VITE [VITAMINS NOS] [Concomitant]
     Dosage: 1 DF, QD
     Route: 048
  34. EPOGEN [Concomitant]
     Dosage: 15000 U, TIW
     Route: 058
  35. ALBUTEROL INHALER [Concomitant]
  36. ACETAMINOPHEN [Concomitant]
  37. SODIUM POLYSTYRENE SULFONATE [Concomitant]
  38. PHOSLO [Concomitant]
  39. GADOLINIUM IN UNSPECIFIED DRUG [Suspect]
     Indication: IMAGING PROCEDURE
     Dosage: UNK
     Dates: start: 20020215, end: 20020215
  40. OMNISCAN [Suspect]
     Indication: VENOGRAM
     Dosage: 30 ML, ONCE
     Route: 042
     Dates: start: 20040205, end: 20040205
  41. RENAGEL [Concomitant]
     Dosage: 400 MG, WITH MEALS
  42. NIFEREX [POLYSACCHARIDE-IRON COMPLEX] [Concomitant]
  43. FOLATE SODIUM [Concomitant]
  44. GATIFLOXACIN [Concomitant]
  45. CHLORAL HYDRATE [Concomitant]
  46. NALOXONE [Concomitant]
  47. ATIVAN [Concomitant]
     Indication: ANXIETY
     Dosage: 1 MG, BID
     Route: 048
  48. MIDODRINE HYDROCHLORIDE [Concomitant]
     Dosage: 10 MG, QID
     Route: 048
  49. NPH INSULIN [Concomitant]
     Dosage: 15 UNK, QD IN PM
     Route: 058
  50. FENTANYL [Concomitant]
     Indication: WOUND COMPLICATION
     Dosage: 150 MCG Q 72 HOURS
     Route: 061
  51. BENADRYL [Concomitant]
  52. DARBEPOETIN ALFA [Concomitant]
  53. OXYCODONE [Concomitant]

REACTIONS (25)
  - PAIN [None]
  - PAIN IN EXTREMITY [None]
  - HYPERKERATOSIS [None]
  - ANHEDONIA [None]
  - FIBROSIS [None]
  - OEDEMA PERIPHERAL [None]
  - DEFORMITY [None]
  - SKIN HYPERTROPHY [None]
  - SKIN LESION [None]
  - EMOTIONAL DISORDER [None]
  - EXTREMITY CONTRACTURE [None]
  - SKIN FIBROSIS [None]
  - SKIN BURNING SENSATION [None]
  - PRURITUS [None]
  - ULCER [None]
  - SKIN DISCOLOURATION [None]
  - MUSCLE CONTRACTURE [None]
  - PARAKERATOSIS [None]
  - OPEN WOUND [None]
  - GENERAL PHYSICAL HEALTH DETERIORATION [None]
  - SKIN INDURATION [None]
  - NEPHROGENIC SYSTEMIC FIBROSIS [None]
  - JOINT CONTRACTURE [None]
  - LEG AMPUTATION [None]
  - DISCOMFORT [None]
